FAERS Safety Report 11350285 (Version 2)
Quarter: 2018Q1

REPORT INFORMATION
  Report Type: Report from Study
  Country: US (occurrence: US)
  Receive Date: 20150807
  Receipt Date: 20180313
  Transmission Date: 20180508
  Serious: Yes (Other)
  Sender: FDA-Public Use
  Company Number: US-SA-2015SA114474

PATIENT
  Age: 65 Year
  Sex: Female

DRUGS (7)
  1. LANTUS SOLOSTAR [Suspect]
     Active Substance: INSULIN GLARGINE
     Indication: TYPE 2 DIABETES MELLITUS
     Dosage: 10 UNITS IN THE MORNING AND 20 UNITS AT NIGHT
     Route: 058
     Dates: start: 2013
  2. LANTUS SOLOSTAR [Interacting]
     Active Substance: INSULIN GLARGINE
     Indication: TYPE 2 DIABETES MELLITUS
     Dosage: 20 UNITS IN THE MORNING AND 30 UNITS AT NIGHT
     Route: 058
     Dates: end: 201507
  3. LANTUS SOLOSTAR [Interacting]
     Active Substance: INSULIN GLARGINE
     Indication: TYPE 2 DIABETES MELLITUS
     Dosage: DOSE:30 UNIT(S)
     Route: 058
  4. SOLOSTAR [Suspect]
     Active Substance: DEVICE
     Indication: TYPE 2 DIABETES MELLITUS
  5. SOLOSTAR [Suspect]
     Active Substance: DEVICE
     Indication: TYPE 2 DIABETES MELLITUS
  6. LEVOTHYROXINE. [Interacting]
     Active Substance: LEVOTHYROXINE
     Route: 065
     Dates: start: 2017
  7. SOLOSTAR [Suspect]
     Active Substance: DEVICE
     Indication: TYPE 2 DIABETES MELLITUS

REACTIONS (14)
  - Gastroenteritis viral [Recovered/Resolved]
  - Cardiac disorder [Unknown]
  - Dry skin [Unknown]
  - Hyperphagia [Unknown]
  - Off label use [Unknown]
  - Stomach mass [Recovered/Resolved]
  - Weight decreased [Unknown]
  - Malaise [Unknown]
  - Drug interaction [Unknown]
  - Glycosylated haemoglobin increased [Unknown]
  - Heart rate increased [Unknown]
  - Blood glucose increased [Not Recovered/Not Resolved]
  - Cough [Recovering/Resolving]
  - Abdominal discomfort [Recovered/Resolved]

NARRATIVE: CASE EVENT DATE: 201712
